FAERS Safety Report 9189528 (Version 1)
Quarter: 2013Q1

REPORT INFORMATION
  Report Type: Spontaneous
  Country: US (occurrence: US)
  Receive Date: 20130326
  Receipt Date: 20130326
  Transmission Date: 20140127
  Serious: Yes (Other)
  Sender: FDA-Public Use
  Company Number: US-JNJFOC-20130311191

PATIENT
  Sex: 0

DRUGS (4)
  1. LEVOFLOXACIN [Suspect]
     Indication: INFECTION
     Dosage: 500 OR 750 MG
     Route: 065
  2. LEVOFLOXACIN [Suspect]
     Indication: PROPHYLAXIS
     Dosage: 500 OR 750 MG
     Route: 065
  3. POSACONAZOLE [Suspect]
     Indication: INFECTION
     Route: 065
  4. POSACONAZOLE [Suspect]
     Indication: PROPHYLAXIS
     Route: 065

REACTIONS (1)
  - Electrocardiogram QT shortened [Unknown]
